FAERS Safety Report 5391339-4 (Version None)
Quarter: 2007Q3

REPORT INFORMATION
  Report Type: 
  Country: None (occurrence: None)
  Receive Date: 20070716
  Receipt Date: 20070716
  Transmission Date: 20080115
  Serious: No
  Sender: FDA-Public Use
  Company Number: None

PATIENT

DRUGS (8)
  1. TEGRETOL-XR [Suspect]
     Dosage: TABLET, EXTENDED RELEASE
  2. MAX ANABOL [Suspect]
     Dosage: CAPSULE
  3. MAX LEAN PM [Suspect]
  4. JOINT FUEL [Suspect]
  5. MAX TRIBUSTAK [Suspect]
     Dosage: CAPSULE
  6. ENERX [Suspect]
     Dosage: CAPSULE
  7. THERMX [Suspect]
     Dosage: CAPSULE
  8. MAX KRE-ALKALYN [Suspect]
     Dosage: CAPSULE

REACTIONS (8)
  - BLOOD POTASSIUM DECREASED [None]
  - CONVULSIVE THRESHOLD LOWERED [None]
  - DRUG INTERACTION [None]
  - DRUG LEVEL DECREASED [None]
  - LOSS OF CONSCIOUSNESS [None]
  - MEDICATION ERROR [None]
  - STATUS EPILEPTICUS [None]
  - TREATMENT NONCOMPLIANCE [None]
